FAERS Safety Report 17227468 (Version 2)
Quarter: 2020Q1

REPORT INFORMATION
  Report Type: Report from Study
  Country: US (occurrence: US)
  Receive Date: 20200103
  Receipt Date: 20200108
  Transmission Date: 20200409
  Serious: No
  Sender: FDA-Public Use
  Company Number: NVSC2019US084273

PATIENT
  Sex: Female

DRUGS (1)
  1. ENTRESTO [Suspect]
     Active Substance: SACUBITRIL\VALSARTAN
     Indication: PRODUCT USED FOR UNKNOWN INDICATION
     Dosage: 50 MG (24MG SACUBITRIL /26MGVALSARTAN)
     Route: 048

REACTIONS (3)
  - Speech disorder [Unknown]
  - Nasopharyngitis [Unknown]
  - Oropharyngeal pain [Unknown]
